FAERS Safety Report 8840657 (Version 1)
Quarter: 2012Q4

REPORT INFORMATION
  Report Type: 
  Country: US (occurrence: US)
  Receive Date: 20121015
  Receipt Date: 20121015
  Transmission Date: 20130627
  Serious: Yes (Hospitalization)
  Sender: FDA-Public Use
  Company Number: US-ROCHE-1122359

PATIENT
  Age: 5 Year
  Sex: Male

DRUGS (2)
  1. NUTROPIN [Suspect]
     Indication: DWARFISM
     Route: 065
     Dates: start: 200703
  2. NUTROPIN [Suspect]
     Dosage: 0.7 mg/day at 22 hours
     Route: 065

REACTIONS (4)
  - Hypoglycaemic seizure [Unknown]
  - Malaise [Unknown]
  - Hypersomnia [Unknown]
  - Tremor [Recovered/Resolved]
